FAERS Safety Report 8480244 (Version 2)
Quarter: 2012Q4

REPORT INFORMATION
  Report Type: 
  Country: FR (occurrence: FR)
  Receive Date: 20120328
  Receipt Date: 20121127
  Transmission Date: 20130627
  Serious: Yes (Hospitalization)
  Sender: FDA-Public Use
  Company Number: FR-ROCHE-1050260

PATIENT
  Sex: Male
  Weight: 93 kg

DRUGS (7)
  1. COPEGUS [Suspect]
     Indication: CHRONIC HEPATITIS C
     Route: 048
     Dates: start: 20111205
  2. PEGASYS [Suspect]
     Indication: CHRONIC HEPATITIS C
     Route: 058
     Dates: start: 20111205
  3. TELAPREVIR [Suspect]
     Indication: CHRONIC HEPATITIS C
     Route: 048
     Dates: start: 20111205, end: 20120227
  4. ZYPREXA [Concomitant]
  5. SEROPRAM (FRANCE) [Concomitant]
  6. RIVOTRIL [Concomitant]
  7. SUBUTEX [Concomitant]

REACTIONS (1)
  - Generalised oedema [Recovered/Resolved]
